FAERS Safety Report 11302271 (Version 1)
Quarter: 2015Q3

REPORT INFORMATION
  Report Type: Spontaneous
  Country: US (occurrence: US)
  Receive Date: 20150722
  Receipt Date: 20150722
  Transmission Date: 20151125
  Serious: No
  Sender: FDA-Public Use
  Company Number: US-ELI_LILLY_AND_COMPANY-US200705002904

PATIENT
  Sex: Female

DRUGS (1)
  1. EVISTA [Suspect]
     Active Substance: RALOXIFENE HYDROCHLORIDE
     Dosage: 60 MG, UNK
     Route: 048

REACTIONS (4)
  - Oral pain [Not Recovered/Not Resolved]
  - Pain in jaw [Recovering/Resolving]
  - Drug ineffective [Unknown]
  - Ear pain [Recovering/Resolving]
